FAERS Safety Report 7526715-4 (Version None)
Quarter: 2011Q2

REPORT INFORMATION
  Report Type: 
  Country: None (occurrence: None)
  Receive Date: 20110606
  Receipt Date: 20110527
  Transmission Date: 20111010
  Serious: Yes (Hospitalization, Other)
  Sender: FDA-Public Use
  Company Number: US-ASTRAZENECA-2011SE30413

PATIENT
  Age: 65 Year
  Sex: Female

DRUGS (2)
  1. FOSAMAX [Concomitant]
  2. NEXIUM [Suspect]
     Route: 048

REACTIONS (2)
  - ROTATOR CUFF REPAIR [None]
  - LIMB INJURY [None]
